FAERS Safety Report 17847408 (Version 1)
Quarter: 2020Q2

REPORT INFORMATION
  Report Type: Spontaneous
  Country: FR (occurrence: FR)
  Receive Date: 20200601
  Receipt Date: 20200601
  Transmission Date: 20200714
  Serious: Yes (Life-Threatening, Other)
  Sender: FDA-Public Use
  Company Number: FR-PFIZER INC-2020212011

PATIENT
  Age: 44 Year
  Sex: Male
  Weight: 86 kg

DRUGS (7)
  1. TERALITHE [Suspect]
     Active Substance: LITHIUM CARBONATE
     Dosage: 36 DF, SINGLE
     Route: 048
     Dates: start: 20200219, end: 20200219
  2. VENLAFAXINE HCL [Suspect]
     Active Substance: VENLAFAXINE HYDROCHLORIDE
     Dosage: 18 DF, SINGLE
     Route: 048
     Dates: start: 20200219, end: 20200219
  3. BACLOFEN. [Suspect]
     Active Substance: BACLOFEN
     Dosage: 27 DF, SINGLE
     Route: 048
     Dates: start: 20200219, end: 20200219
  4. SERESTA [Suspect]
     Active Substance: OXAZEPAM
     Dosage: 3000 MG, SINGLE
     Route: 048
     Dates: start: 20200219, end: 20200219
  5. ZOPICLONE [Suspect]
     Active Substance: ZOPICLONE
     Dosage: 25 DF, SINGLE
     Route: 048
     Dates: start: 20200219, end: 20200219
  6. THERALENE [Suspect]
     Active Substance: TRIMEPRAZINE
     Dosage: 41 DF, SINGLE
     Route: 048
     Dates: start: 20200219, end: 20200219
  7. QUETIAPINE. [Suspect]
     Active Substance: QUETIAPINE
     Dosage: 9300 MG, SINGLE
     Route: 048
     Dates: start: 20200219, end: 20200219

REACTIONS (6)
  - Miosis [Recovered/Resolved]
  - Intentional overdose [Recovered/Resolved]
  - Coma [Recovered/Resolved]
  - Tachycardia [Recovered/Resolved]
  - Oxygen saturation decreased [Recovered/Resolved]
  - Poisoning deliberate [Recovered/Resolved]

NARRATIVE: CASE EVENT DATE: 20200219
